FAERS Safety Report 5209634-8 (Version None)
Quarter: 2007Q1

REPORT INFORMATION
  Report Type: 
  Country: None (occurrence: None)
  Receive Date: 20070111
  Receipt Date: 20070103
  Transmission Date: 20070707
  Serious: Yes (Hospitalization)
  Sender: FDA-Public Use
  Company Number: GXKR2007GB00490

PATIENT
  Sex: Female

DRUGS (4)
  1. PAROXETINE HCL [Suspect]
     Indication: DEPRESSION
     Dosage: 20 MG QD ; 40 MG QD ; 30 MG QD ; 40 MG QD
     Dates: start: 20011108, end: 20011214
  2. PAROXETINE HCL [Suspect]
     Indication: DEPRESSION
     Dosage: 20 MG QD ; 40 MG QD ; 30 MG QD ; 40 MG QD
     Dates: start: 20011214, end: 20020117
  3. PAROXETINE HCL [Suspect]
     Indication: DEPRESSION
     Dosage: 20 MG QD ; 40 MG QD ; 30 MG QD ; 40 MG QD
     Dates: start: 20020117, end: 20030207
  4. PAROXETINE HCL [Suspect]
     Indication: DEPRESSION
     Dosage: 20 MG QD ; 40 MG QD ; 30 MG QD ; 40 MG QD
     Dates: start: 20030207, end: 20030926

REACTIONS (12)
  - CONFUSIONAL STATE [None]
  - DEHYDRATION [None]
  - DIZZINESS [None]
  - DRUG WITHDRAWAL SYNDROME [None]
  - FATIGUE [None]
  - NAUSEA [None]
  - NIGHTMARE [None]
  - PARAESTHESIA [None]
  - SUICIDAL IDEATION [None]
  - TEARFULNESS [None]
  - VOMITING [None]
  - WEIGHT DECREASED [None]
